FAERS Safety Report 11821154 (Version 1)
Quarter: 2015Q4

REPORT INFORMATION
  Report Type: Spontaneous
  Country: US (occurrence: US)
  Receive Date: 20151210
  Receipt Date: 20151210
  Transmission Date: 20160305
  Serious: No
  Sender: FDA-Public Use
  Company Number: US-JNJFOC-20150617190

PATIENT
  Age: 70 Year
  Sex: Female

DRUGS (10)
  1. LISINOPRIL. [Concomitant]
     Active Substance: LISINOPRIL
  2. CLINDAMYCIN [Concomitant]
     Active Substance: CLINDAMYCIN\CLINDAMYCIN PHOSPHATE
  3. PEPCID [Concomitant]
     Active Substance: FAMOTIDINE
  4. IMBRUVICA [Suspect]
     Active Substance: IBRUTINIB
     Indication: CHRONIC LYMPHOCYTIC LEUKAEMIA
     Route: 048
     Dates: start: 20150720
  5. IMBRUVICA [Suspect]
     Active Substance: IBRUTINIB
     Indication: CHRONIC LYMPHOCYTIC LEUKAEMIA
     Route: 048
     Dates: start: 20150520, end: 2015
  6. ATENOLOL. [Concomitant]
     Active Substance: ATENOLOL
  7. ALDACTONE [Concomitant]
     Active Substance: SPIRONOLACTONE
  8. PREDNISONE. [Concomitant]
     Active Substance: PREDNISONE
  9. CLARITIN [Concomitant]
     Active Substance: LORATADINE
  10. XANAX [Concomitant]
     Active Substance: ALPRAZOLAM

REACTIONS (6)
  - Epistaxis [Not Recovered/Not Resolved]
  - Nausea [Unknown]
  - White blood cell count increased [Unknown]
  - Somnolence [Not Recovered/Not Resolved]
  - Contusion [Unknown]
  - Diarrhoea [Not Recovered/Not Resolved]

NARRATIVE: CASE EVENT DATE: 2015
